FAERS Safety Report 8776967 (Version 2)
Quarter: 2013Q1

REPORT INFORMATION
  Report Type: Spontaneous
  Country: US (occurrence: US)
  Receive Date: 20120911
  Receipt Date: 20130111
  Transmission Date: 20140127
  Serious: Yes (Hospitalization)
  Sender: FDA-Public Use
  Company Number: US-GLAXOSMITHKLINE-A0992784A

PATIENT
  Age: 76 Year
  Sex: Female

DRUGS (1)
  1. FLOLAN [Suspect]
     Indication: PRODUCT USED FOR UNKNOWN INDICATION
     Dosage: 24NGKM CONTINUOUS
     Route: 042
     Dates: start: 20120402

REACTIONS (3)
  - Hospitalisation [Unknown]
  - Blood potassium decreased [Unknown]
  - Medical device removal [Unknown]
